FAERS Safety Report 9381387 (Version 1)
Quarter: 2013Q3

REPORT INFORMATION
  Report Type: Spontaneous
  Country: PL (occurrence: PL)
  Receive Date: 20130703
  Receipt Date: 20130703
  Transmission Date: 20140515
  Serious: Yes (Hospitalization, Other)
  Sender: FDA-Public Use
  Company Number: PHHY2013PL067721

PATIENT
  Age: 56 Year
  Sex: Male
  Weight: 117 kg

DRUGS (4)
  1. TASIGNA [Suspect]
     Indication: CHRONIC MYELOID LEUKAEMIA
     Dosage: 2X400
     Route: 048
     Dates: start: 20121128
  2. TASIGNA [Suspect]
     Dosage: UNK
     Route: 048
  3. BETO ZK [Concomitant]
     Indication: HYPERTENSION
     Dosage: 200 MG/DAY
     Route: 048
     Dates: start: 20110215
  4. INDIX [Suspect]
     Indication: HYPERTENSION
     Dosage: 1.5 MG/DAY
     Route: 048
     Dates: start: 20110215

REACTIONS (1)
  - Myocardial infarction [Recovering/Resolving]
